FAERS Safety Report 22786905 (Version 2)
Quarter: 2023Q4

REPORT INFORMATION
  Report Type: Spontaneous
  Country: US (occurrence: US)
  Receive Date: 20230804
  Receipt Date: 20231114
  Transmission Date: 20240110
  Serious: No
  Sender: FDA-Public Use
  Company Number: US-BRISTOL-MYERS SQUIBB COMPANY-2023-109685

PATIENT
  Age: 89 Year
  Sex: Male

DRUGS (1)
  1. INREBIC [Suspect]
     Active Substance: FEDRATINIB HYDROCHLORIDE
     Indication: Product used for unknown indication
     Dosage: FREQUENCY: ONCE DAILY WITH A HIGH FAT MEAL FOR 4 WEEKS THEN INCREASE TO TAKE 4 TABLETS BY MOUTH DAIL
     Route: 048

REACTIONS (3)
  - Product dose omission issue [Unknown]
  - Haemoglobin decreased [Unknown]
  - Platelet count decreased [Unknown]
